FAERS Safety Report 20568774 (Version 1)
Quarter: 2022Q1

REPORT INFORMATION
  Report Type: Spontaneous
  Country: US (occurrence: US)
  Receive Date: 20220308
  Receipt Date: 20220308
  Transmission Date: 20220423
  Serious: No
  Sender: FDA-Public Use
  Company Number: US-PFIZER INC-202101753094

PATIENT
  Age: 81 Year
  Sex: Male

DRUGS (1)
  1. INLYTA [Suspect]
     Active Substance: AXITINIB
     Dosage: 5 MG
     Dates: start: 20211124

REACTIONS (5)
  - Bradykinesia [Unknown]
  - Dyspnoea [Unknown]
  - Neck pain [Unknown]
  - Dysphonia [Unknown]
  - Headache [Unknown]

NARRATIVE: CASE EVENT DATE: 20210101
